FAERS Safety Report 7555076-X (Version None)
Quarter: 2011Q2

REPORT INFORMATION
  Report Type: 
  Country: None (occurrence: None)
  Receive Date: 20110617
  Receipt Date: 20110610
  Transmission Date: 20111010
  Serious: Yes (Hospitalization, Other)
  Sender: FDA-Public Use
  Company Number: JP-CEPHALON-2011001678

PATIENT
  Sex: Male
  Weight: 55 kg

DRUGS (9)
  1. DEXAMETHASONE [Concomitant]
     Dates: start: 20110317, end: 20110427
  2. SULFAMETHOXAZOLE AND TRIMETHOPRIM [Concomitant]
     Dates: start: 20110111
  3. PANTETHINE [Concomitant]
     Dates: start: 20110113, end: 20110310
  4. GRANISETRON [Concomitant]
     Dates: start: 20110315, end: 20110427
  5. BENDAMUSTINE HCL [Suspect]
     Indication: MANTLE CELL LYMPHOMA
     Route: 042
     Dates: start: 20110315
  6. LANSOPRAZOLE [Concomitant]
  7. DEXAMETHASONE [Concomitant]
     Dates: start: 20110315, end: 20110427
  8. ACYCLOVIR [Concomitant]
     Dates: start: 20110316
  9. SENNOSIDE [Concomitant]

REACTIONS (14)
  - PYREXIA [None]
  - BLOOD PRESSURE DECREASED [None]
  - DECREASED APPETITE [None]
  - NEUTROPHIL COUNT DECREASED [None]
  - PANCYTOPENIA [None]
  - CYTOMEGALOVIRUS VIRAEMIA [None]
  - RASH [None]
  - LYMPHOCYTE COUNT DECREASED [None]
  - INJECTION SITE INDURATION [None]
  - WEIGHT DECREASED [None]
  - HISTIOCYTOSIS HAEMATOPHAGIC [None]
  - ORAL CANDIDIASIS [None]
  - DISSEMINATED INTRAVASCULAR COAGULATION [None]
  - OESOPHAGEAL CANDIDIASIS [None]
